FAERS Safety Report 7055280-3 (Version None)
Quarter: 2010Q4

REPORT INFORMATION
  Report Type: 
  Country: None (occurrence: None)
  Receive Date: 20101020
  Receipt Date: 20101020
  Transmission Date: 20110411
  Serious: Yes (Other)
  Sender: FDA-Public Use
  Company Number: None

PATIENT
  Age: 77 Year
  Sex: Female
  Weight: 36.2878 kg

DRUGS (1)
  1. RECLAST [Suspect]
     Indication: BONE DISORDER
     Dosage: 1 TIME A YEAR
     Dates: start: 20100501

REACTIONS (17)
  - APHONIA [None]
  - DYSPHONIA [None]
  - DYSSTASIA [None]
  - EYE PAIN [None]
  - FATIGUE [None]
  - FEELING COLD [None]
  - HEADACHE [None]
  - HYPOAESTHESIA [None]
  - INFLUENZA LIKE ILLNESS [None]
  - MUSCLE SPASMS [None]
  - MYALGIA [None]
  - NAUSEA [None]
  - OEDEMA PERIPHERAL [None]
  - OROPHARYNGEAL PAIN [None]
  - PRURITUS [None]
  - URTICARIA [None]
  - VOMITING [None]
